FAERS Safety Report 7723338-9 (Version None)
Quarter: 2011Q3

REPORT INFORMATION
  Report Type: 
  Country: None (occurrence: None)
  Receive Date: 20110901
  Receipt Date: 20110901
  Transmission Date: 20111222
  Serious: Yes (Hospitalization, Other)
  Sender: FDA-Public Use
  Company Number: None

PATIENT
  Sex: Male
  Weight: 77 kg

DRUGS (5)
  1. PRILOSEC [Suspect]
     Dosage: 20 MG
     Route: 048
     Dates: start: 20110210, end: 20110410
  2. B12 COMPLEX [Concomitant]
     Route: 048
  3. FISH OIL [Concomitant]
     Route: 048
  4. SINGULAIR [Concomitant]
  5. MULTI-VITAMIN [Concomitant]
     Route: 048

REACTIONS (14)
  - FATIGUE [None]
  - NASAL MUCOSAL DISORDER [None]
  - HEART RATE INCREASED [None]
  - ANXIETY [None]
  - THYROID FUNCTION TEST ABNORMAL [None]
  - ARTHRALGIA [None]
  - DEREALISATION [None]
  - VISUAL IMPAIRMENT [None]
  - HYPOPHAGIA [None]
  - WEIGHT DECREASED [None]
  - PHARYNGEAL ERYTHEMA [None]
  - PALPITATIONS [None]
  - DEPRESSION [None]
  - PANIC ATTACK [None]
